FAERS Safety Report 9438833 (Version 1)
Quarter: 2013Q3

REPORT INFORMATION
  Report Type: Spontaneous
  Country: CA (occurrence: CA)
  Receive Date: 20130802
  Receipt Date: 20130802
  Transmission Date: 20140515
  Serious: Yes (Hospitalization)
  Sender: FDA-Public Use
  Company Number: CA-ELI_LILLY_AND_COMPANY-CA201307007893

PATIENT
  Sex: Female

DRUGS (1)
  1. HUMULIN NPH [Suspect]

REACTIONS (2)
  - Drug dose omission [Recovered/Resolved]
  - Confusional state [Unknown]
